FAERS Safety Report 5018353-2 (Version None)
Quarter: 2006Q2

REPORT INFORMATION
  Report Type: 
  Country: None (occurrence: None)
  Receive Date: 20060530
  Receipt Date: 20060516
  Transmission Date: 20061013
  Serious: Yes (Hospitalization)
  Sender: FDA-Public Use
  Company Number: 232284K06USA

PATIENT
  Age: 49 Year
  Sex: Female

DRUGS (3)
  1. REBIF [Suspect]
     Indication: MULTIPLE SCLEROSIS
     Dosage: 44 MCG, 3 IN 1 WEEKS,
     Dates: start: 20060101
  2. PHENOBARBITAL (PHENOBARBITAL /00023201/) [Concomitant]
  3. TYLENOL (COTYLENOL) [Concomitant]

REACTIONS (6)
  - CONDITION AGGRAVATED [None]
  - CRYING [None]
  - FEAR [None]
  - HYPERVENTILATION [None]
  - MULTIPLE SCLEROSIS [None]
  - URINARY TRACT INFECTION [None]
